FAERS Safety Report 6861341-1 (Version None)
Quarter: 2010Q3

REPORT INFORMATION
  Report Type: 
  Country: None (occurrence: None)
  Receive Date: 20100720
  Receipt Date: 20100709
  Transmission Date: 20110219
  Serious: Yes (Other)
  Sender: FDA-Public Use
  Company Number: HQWYE126104FEB05

PATIENT
  Sex: Female
  Weight: 64.47 kg

DRUGS (2)
  1. PREMPRO [Suspect]
     Indication: MENOPAUSAL SYMPTOMS
  2. PROVERA [Suspect]
     Indication: MENOPAUSAL SYMPTOMS

REACTIONS (4)
  - BREAST CANCER IN SITU [None]
  - BREAST CANCER METASTATIC [None]
  - COLITIS [None]
  - METASTASES TO LYMPH NODES [None]
